FAERS Safety Report 16689279 (Version 4)
Quarter: 2019Q4

REPORT INFORMATION
  Report Type: Spontaneous
  Country: JP (occurrence: JP)
  Receive Date: 20190809
  Receipt Date: 20191017
  Transmission Date: 20200122
  Serious: Yes (Hospitalization, Other)
  Sender: FDA-Public Use
  Company Number: JP-009507513-1907JPN001291J

PATIENT
  Age: 56 Year
  Sex: Male
  Weight: 53 kg

DRUGS (8)
  1. CERCINE [Concomitant]
     Active Substance: DIAZEPAM
     Indication: ANXIETY
     Dosage: 5 MILLIGRAM, QD
     Route: 048
     Dates: end: 20190826
  2. MIYA-BM [Concomitant]
     Active Substance: CLOSTRIDIUM BUTYRICUM SPORES STRAIN M-55
     Indication: DIARRHOEA
     Dosage: 20 MILLIGRAM, TID
     Route: 048
     Dates: end: 20190826
  3. HUSTAZOL [Concomitant]
     Indication: COUGH
     Dosage: 20 MILLIGRAM, TID
     Route: 048
     Dates: start: 20181206, end: 20190826
  4. NAIXAN [Concomitant]
     Active Substance: NAPROXEN SODIUM
     Indication: TUMOUR ASSOCIATED FEVER
     Dosage: 200 MILLIGRAM, TID
     Route: 048
     Dates: start: 20181212, end: 20190826
  5. KEYTRUDA [Suspect]
     Active Substance: PEMBROLIZUMAB
     Indication: NON-SMALL CELL LUNG CANCER
     Dosage: 200 MILLIGRAM, Q3W
     Route: 041
     Dates: start: 20190227, end: 20190513
  6. TAKECAB [Concomitant]
     Active Substance: VONOPRAZAN FUMURATE
     Indication: GASTRIC MUCOSAL LESION
     Dosage: 10 MILLIGRAM, QD
     Route: 048
     Dates: start: 20181111, end: 20190826
  7. LYRICA [Concomitant]
     Active Substance: PREGABALIN
     Indication: NEURALGIA
     Dosage: 25 MILLIGRAM, BID
     Route: 048
     Dates: end: 20190826
  8. TETRAMIDE [Concomitant]
     Active Substance: MIANSERIN
     Indication: ANXIETY
     Dosage: 10 MILLIGRAM, QD
     Route: 048
     Dates: end: 20190826

REACTIONS (4)
  - Hypopituitarism [Recovering/Resolving]
  - Dizziness [Unknown]
  - Subarachnoid haemorrhage [Unknown]
  - Fall [Unknown]

NARRATIVE: CASE EVENT DATE: 20190520
